FAERS Safety Report 7035131-3 (Version None)
Quarter: 2010Q4

REPORT INFORMATION
  Report Type: 
  Country: None (occurrence: None)
  Receive Date: 20101008
  Receipt Date: 20101002
  Transmission Date: 20110411
  Serious: Yes (Other)
  Sender: FDA-Public Use
  Company Number: CHPA2010NO13349

PATIENT
  Age: 38 Year
  Sex: Female

DRUGS (1)
  1. OTRIVIN [Suspect]
     Indication: HYPERSENSITIVITY
     Dosage: 1-1.5 NASAL SPRAYS EVERY WEEK
     Route: 045

REACTIONS (2)
  - DRUG DEPENDENCE [None]
  - INTENTIONAL DRUG MISUSE [None]
